FAERS Safety Report 23042757 (Version 1)
Quarter: 2023Q4

REPORT INFORMATION
  Report Type: Spontaneous
  Country: CN (occurrence: CN)
  Receive Date: 20231009
  Receipt Date: 20231009
  Transmission Date: 20240110
  Serious: Yes (Death, Hospitalization, Other)
  Sender: FDA-Public Use
  Company Number: CN-BRISTOL-MYERS SQUIBB COMPANY-2023-140946

PATIENT
  Age: 9 Decade
  Sex: Female

DRUGS (1)
  1. NIVOLUMAB [Suspect]
     Active Substance: NIVOLUMAB
     Indication: Lip and/or oral cavity cancer
     Dosage: 3 DOSES

REACTIONS (2)
  - Lupus nephritis [Not Recovered/Not Resolved]
  - Multiple organ dysfunction syndrome [Fatal]
